FAERS Safety Report 8318102-6 (Version None)
Quarter: 2012Q2

REPORT INFORMATION
  Report Type: 
  Country: None (occurrence: None)
  Receive Date: 20120427
  Receipt Date: 20120416
  Transmission Date: 20120825
  Serious: Yes (Hospitalization)
  Sender: FDA-Public Use
  Company Number: JP-ROCHE-1060247

PATIENT
  Sex: Female
  Weight: 55 kg

DRUGS (4)
  1. FEMARA [Concomitant]
     Indication: BREAST CANCER METASTATIC
     Route: 048
     Dates: start: 20120111, end: 20120411
  2. TAXOTERE [Concomitant]
     Indication: BREAST CANCER METASTATIC
     Route: 041
     Dates: start: 20120412
  3. HERCEPTIN [Suspect]
     Indication: BREAST CANCER METASTATIC
     Route: 041
     Dates: start: 20120322, end: 20120322
  4. HERCEPTIN [Suspect]
     Route: 041
     Dates: start: 20120412, end: 20120412

REACTIONS (2)
  - INFUSION RELATED REACTION [None]
  - TUMOUR LYSIS SYNDROME [None]
